FAERS Safety Report 9617266 (Version 1)
Quarter: 2013Q4

REPORT INFORMATION
  Report Type: Spontaneous
  Country: CA (occurrence: CA)
  Receive Date: 20131011
  Receipt Date: 20131011
  Transmission Date: 20140711
  Serious: Yes (Other)
  Sender: FDA-Public Use
  Company Number: CA-AMGEN-CANSP2013070682

PATIENT
  Age: 86 Year
  Sex: Female

DRUGS (3)
  1. ENBREL [Suspect]
     Indication: RHEUMATOID ARTHRITIS
     Dosage: 50 MG, UNK
     Route: 065
     Dates: start: 20060124, end: 2011
  2. TYLENOL ARTHRITIS [Concomitant]
     Dosage: UNK
  3. MORPHINE [Concomitant]
     Dosage: UNK

REACTIONS (1)
  - Renal impairment [Recovered/Resolved]
